FAERS Safety Report 9248170 (Version 3)
Quarter: 2014Q1

REPORT INFORMATION
  Report Type: Spontaneous
  Country: US (occurrence: US)
  Receive Date: 20130423
  Receipt Date: 20140115
  Transmission Date: 20141002
  Serious: Yes (Hospitalization, Other)
  Sender: FDA-Public Use
  Company Number: US-ASTRAZENECA-2013SE27275

PATIENT
  Age: 62 Year
  Sex: Female
  Weight: 88.5 kg

DRUGS (10)
  1. NEXIUM [Suspect]
     Indication: GASTROOESOPHAGEAL REFLUX DISEASE
     Route: 048
     Dates: start: 1995, end: 2011
  2. NEXIUM [Suspect]
     Indication: GASTROOESOPHAGEAL REFLUX DISEASE
     Route: 048
     Dates: start: 200503
  3. PRILOSEC [Suspect]
     Dosage: 2 TIMES DAILY
     Route: 048
     Dates: start: 1994, end: 1995
  4. PROTONIX [Concomitant]
     Dosage: 2 TIMES DAILY
     Dates: start: 1994, end: 1995
  5. PREVACID [Concomitant]
     Dosage: 4 TIMES DAILY
     Dates: start: 1994, end: 1995
  6. TAGAMET [Concomitant]
     Dates: start: 1990, end: 1995
  7. PEPTO BISMOL [Concomitant]
     Dosage: TOOK AS NEEDED
  8. REQUIP [Concomitant]
  9. TRIAMTERENE [Concomitant]
  10. SIMVASTATIN [Concomitant]

REACTIONS (14)
  - Myocardial infarction [Unknown]
  - Dyspnoea [Unknown]
  - Arthropathy [Unknown]
  - Osteoporosis [Unknown]
  - Bone disorder [Unknown]
  - Multiple fractures [Unknown]
  - Hand fracture [Unknown]
  - Gastric disorder [Unknown]
  - Arthritis [Unknown]
  - Local swelling [Unknown]
  - Anxiety [Unknown]
  - Joint swelling [Unknown]
  - Vomiting [Unknown]
  - Depression [Unknown]
